FAERS Safety Report 4709026-1 (Version None)
Quarter: 2005Q3

REPORT INFORMATION
  Report Type: 
  Country: None (occurrence: None)
  Receive Date: 20050707
  Receipt Date: 20050620
  Transmission Date: 20060218
  Serious: Yes (Other)
  Sender: FDA-Public Use
  Company Number: TRP_0153_2005

PATIENT
  Age: 48 Year
  Sex: Female

DRUGS (3)
  1. RIBASPHERE [Suspect]
     Indication: HEPATITIS C
     Dosage: DF PO
     Route: 048
     Dates: start: 20041210, end: 20050429
  2. PEG-INTRON [Suspect]
     Indication: HEPATITIS C
     Dosage: DF SC
     Route: 058
     Dates: start: 20041210, end: 20050429
  3. PERCOCET [Concomitant]

REACTIONS (5)
  - ANAEMIA [None]
  - FATIGUE [None]
  - LYMPHADENOPATHY [None]
  - LYMPHOMA [None]
  - PANCREATITIS [None]
